FAERS Safety Report 14074714 (Version 2)
Quarter: 2017Q4

REPORT INFORMATION
  Report Type: Spontaneous
  Country: US (occurrence: US)
  Receive Date: 20171011
  Receipt Date: 20171013
  Transmission Date: 20180321
  Serious: Yes (Other)
  Sender: FDA-Public Use
  Company Number: US-APOTEX-2017AP019512

PATIENT
  Sex: Female

DRUGS (2)
  1. FLUTICASONE PROPIONATE NASAL SPRAY USP [Suspect]
     Active Substance: FLUTICASONE PROPIONATE
     Indication: HYPERSENSITIVITY
     Dosage: UNK, INTRANASAL
     Route: 045
     Dates: start: 2017, end: 201707
  2. FLUTICASONE PROPIONATE NASAL SPRAY USP [Suspect]
     Active Substance: FLUTICASONE PROPIONATE
     Dosage: UNK, INTRANASAL
     Route: 045
     Dates: start: 201709, end: 2017

REACTIONS (7)
  - Toothache [Recovered/Resolved]
  - Nasal dryness [Recovered/Resolved]
  - Pain in jaw [Unknown]
  - Scab [Unknown]
  - Sinusitis [Recovered/Resolved]
  - Facial pain [Unknown]
  - Sinus pain [Recovering/Resolving]

NARRATIVE: CASE EVENT DATE: 2017
